FAERS Safety Report 7177006-5 (Version None)
Quarter: 2010Q4

REPORT INFORMATION
  Report Type: 
  Country: None (occurrence: None)
  Receive Date: 20101220
  Receipt Date: 20101213
  Transmission Date: 20110411
  Serious: Yes (Other)
  Sender: FDA-Public Use
  Company Number: US-AMGEN-USASP2010009162

PATIENT

DRUGS (1)
  1. ENBREL [Suspect]
     Indication: RHEUMATOID ARTHRITIS
     Dates: start: 20090201

REACTIONS (9)
  - ABDOMINAL DISCOMFORT [None]
  - ABDOMINAL NEOPLASM [None]
  - CONTUSION [None]
  - FACIAL BONES FRACTURE [None]
  - FALL [None]
  - LUNG NEOPLASM [None]
  - MUSCULOSKELETAL PAIN [None]
  - SCAB [None]
  - SINUSITIS [None]
